FAERS Safety Report 17205917 (Version 1)
Quarter: 2019Q4

REPORT INFORMATION
  Report Type: Spontaneous
  Country: TR (occurrence: TR)
  Receive Date: 20191227
  Receipt Date: 20191227
  Transmission Date: 20200122
  Serious: No
  Sender: FDA-Public Use
  Company Number: TR-ALKEM LABORATORIES LIMITED-TR-ALKEM-2018-10620

PATIENT
  Age: 37 Year
  Sex: Female

DRUGS (7)
  1. IMMUNOGLOBLULIN [Concomitant]
     Indication: MORPHOEA
     Dosage: 0.4 G, OD
     Route: 042
  2. METHOTRAXATE [Concomitant]
     Active Substance: METHOTREXATE SODIUM
     Indication: SKIN ULCER
     Dosage: UNKNOWN
     Route: 065
  3. TACROLIMUS. [Concomitant]
     Active Substance: TACROLIMUS
     Indication: SKIN ULCER
     Dosage: UNKNOWN
     Route: 061
  4. TACROLIMUS. [Concomitant]
     Active Substance: TACROLIMUS
     Indication: SKIN PLAQUE
  5. METHOTRAXATE [Concomitant]
     Active Substance: METHOTREXATE SODIUM
     Indication: SKIN PLAQUE
  6. METHYPREDNISOLONE [Concomitant]
     Active Substance: METHYLPREDNISOLONE
     Indication: MORPHOEA
     Dosage: 40 MG, OD
     Route: 065
  7. MYCOPHENOLATE MOFETIL. [Suspect]
     Active Substance: MYCOPHENOLATE MOFETIL
     Indication: MORPHOEA
     Dosage: 2 G, OD
     Route: 065

REACTIONS (3)
  - Dizziness [Recovering/Resolving]
  - Drug intolerance [Unknown]
  - Tremor [Recovering/Resolving]
